FAERS Safety Report 13832898 (Version 2)
Quarter: 2017Q3

REPORT INFORMATION
  Report Type: Spontaneous
  Country: US (occurrence: US)
  Receive Date: 20170804
  Receipt Date: 20170821
  Transmission Date: 20171127
  Serious: Yes (Hospitalization, Other)
  Sender: FDA-Public Use
  Company Number: US-TEVA-793735USA

PATIENT
  Age: 71 Year
  Sex: Female

DRUGS (8)
  1. XELJANZ [Suspect]
     Active Substance: TOFACITINIB CITRATE
     Indication: RHEUMATOID NODULE
     Dosage: 11 MILLIGRAM DAILY;
     Route: 048
     Dates: start: 2016
  2. VALSARTAN. [Concomitant]
     Active Substance: VALSARTAN
  3. FOLIC ACID. [Concomitant]
     Active Substance: FOLIC ACID
     Indication: ARTHRITIS
  4. JANUMET [Concomitant]
     Active Substance: METFORMIN HYDROCHLORIDE\SITAGLIPTIN PHOSPHATE
     Indication: DIABETES MELLITUS
  5. VYTORIN [Concomitant]
     Active Substance: EZETIMIBE\SIMVASTATIN
     Indication: BLOOD CHOLESTEROL
  6. RISEDRONIC ACID [Suspect]
     Active Substance: RISEDRONIC ACID
     Dosage: 5 MILLIGRAM DAILY;
     Route: 065
     Dates: start: 20160830, end: 20170102
  7. METHOTREXATE. [Concomitant]
     Active Substance: METHOTREXATE
     Indication: ARTHRITIS
  8. METFORMIN [Concomitant]
     Active Substance: METFORMIN HYDROCHLORIDE
     Indication: DIABETES MELLITUS

REACTIONS (22)
  - Memory impairment [Unknown]
  - Vomiting [Unknown]
  - Cerebrovascular accident [Recovered/Resolved with Sequelae]
  - Dysphagia [Unknown]
  - Joint swelling [Unknown]
  - Nausea [Unknown]
  - Gastrointestinal haemorrhage [Recovered/Resolved]
  - Bronchitis [Unknown]
  - Femur fracture [Recovered/Resolved]
  - Joint injury [Unknown]
  - Sinus tachycardia [Recovered/Resolved]
  - Normocytic anaemia [Unknown]
  - Urinary tract infection [Unknown]
  - Walking disability [Unknown]
  - Fall [Unknown]
  - Hip fracture [Not Recovered/Not Resolved]
  - Speech disorder [Unknown]
  - Ataxia [Unknown]
  - Leukocytosis [Recovering/Resolving]
  - Asthenia [Unknown]
  - Hemiparesis [Unknown]
  - Pleural effusion [Unknown]

NARRATIVE: CASE EVENT DATE: 201701
